FAERS Safety Report 8068132-7 (Version None)
Quarter: 2012Q1

REPORT INFORMATION
  Report Type: 
  Country: None (occurrence: None)
  Receive Date: 20120124
  Receipt Date: 20110922
  Transmission Date: 20120608
  Serious: No
  Sender: FDA-Public Use
  Company Number: US-AMGEN-USASP2011049141

PATIENT
  Age: 63 Year
  Sex: Female

DRUGS (5)
  1. COZAAR [Concomitant]
  2. LEXAPRO [Concomitant]
  3. LEVOXYL [Concomitant]
  4. PROLIA [Suspect]
     Indication: OSTEOPOROSIS POSTMENOPAUSAL
     Dosage: 60 MG, Q6MO
     Dates: start: 20110825
  5. ALDACTAZIDE [Concomitant]

REACTIONS (5)
  - NASAL DRYNESS [None]
  - DIARRHOEA [None]
  - OROPHARYNGEAL PAIN [None]
  - HEADACHE [None]
  - NASOPHARYNGITIS [None]
